FAERS Safety Report 6750214-0 (Version None)
Quarter: 2010Q2

REPORT INFORMATION
  Report Type: 
  Country: None (occurrence: None)
  Receive Date: 20100601
  Receipt Date: 20100521
  Transmission Date: 20101027
  Serious: Yes (Other)
  Sender: FDA-Public Use
  Company Number: MY-PFIZER INC-2010063803

PATIENT
  Age: 61 Year
  Sex: Female

DRUGS (1)
  1. MINIPRESS [Suspect]
     Indication: HYPERTENSION
     Dosage: 3 MG, 1X/DAY
     Route: 048
     Dates: start: 20090801

REACTIONS (3)
  - CHEST PAIN [None]
  - HEADACHE [None]
  - VISION BLURRED [None]
